FAERS Safety Report 9048808 (Version 1)
Quarter: 2013Q1

REPORT INFORMATION
  Report Type: Spontaneous
  Country: US (occurrence: None)
  Receive Date: 20130130
  Receipt Date: 20130130
  Transmission Date: 20140127
  Serious: Yes (Other)
  Sender: FDA-Public Use
  Company Number: None

PATIENT
  Sex: Female

DRUGS (1)
  1. LUPRON DEPOT 11.25 MG ABBVIE US LLC [Suspect]
     Indication: ENDOMETRIOSIS
     Route: 030
     Dates: start: 20121105

REACTIONS (1)
  - Depression [None]
